FAERS Safety Report 5770985-X (Version None)
Quarter: 2008Q2

REPORT INFORMATION
  Report Type: 
  Country: None (occurrence: None)
  Receive Date: 20080613
  Receipt Date: 20080522
  Transmission Date: 20081010
  Serious: Yes (Hospitalization)
  Sender: FDA-Public Use
  Company Number: US-ABBOTT-08P-163-0453001-00

PATIENT
  Sex: Female
  Weight: 90.8 kg

DRUGS (7)
  1. HUMIRA [Suspect]
     Indication: PSORIATIC ARTHROPATHY
     Route: 058
     Dates: start: 20080401
  2. HUMIRA [Suspect]
     Indication: PSORIASIS
  3. BUDESONIDE [Concomitant]
     Indication: ASTHMA
     Dosage: NEBULIZER
     Dates: start: 20080521
  4. LEVOSALBUTAMOL [Concomitant]
     Indication: ASTHMA
     Dosage: NEBULIZER
     Dates: start: 20080510
  5. BRAVONA [Concomitant]
     Indication: ASTHMA
     Dosage: NEBULIZER
     Dates: start: 20080501
  6. PREDNISONE TAB [Concomitant]
     Indication: ASTHMA
     Route: 048
  7. OMEPRAZOLE [Concomitant]
     Indication: GASTROOESOPHAGEAL REFLUX DISEASE
     Route: 048

REACTIONS (1)
  - ASTHMA [None]
